FAERS Safety Report 15097952 (Version 1)
Quarter: 2018Q3

REPORT INFORMATION
  Report Type: Spontaneous
  Country: US (occurrence: US)
  Receive Date: 20180702
  Receipt Date: 20180702
  Transmission Date: 20181010
  Serious: No
  Sender: FDA-Public Use
  Company Number: US-IMPAX LABORATORIES, INC-2018-IPXL-00318

PATIENT
  Sex: Female
  Weight: 55 kg

DRUGS (13)
  1. CARBIDOPA?LEVODOPA ER [Suspect]
     Active Substance: CARBIDOPA\LEVODOPA
     Dosage: 25/100 MG 4:30 AM, 9?9:30 AM, 1:30 PM, 3:30 PM, 6:30 PM, 2?3 AM+ 1.5 AT 7?7:30 AM, 7.5 DF, DAILY
     Route: 065
     Dates: start: 201803
  2. AMANTADINE. [Concomitant]
     Active Substance: AMANTADINE HYDROCHLORIDE
     Indication: PRODUCT USED FOR UNKNOWN INDICATION
     Dosage: UNK
     Route: 065
  3. CARBIDOPA?LEVODOPA ER [Suspect]
     Active Substance: CARBIDOPA\LEVODOPA
     Dosage: 25/100 MG 4:30 AM, 3:30 PM, 6:30 PM, 2?3 AM +1.5 DF 7?7:30 AM,9?9:30 AM,1:30 PM, 8.5 DF, DAILY
     Route: 065
     Dates: start: 201801, end: 2018
  4. RYTARY [Suspect]
     Active Substance: CARBIDOPA\LEVODOPA
     Dosage: 48.75/195 MG (4:30 AM, 9?9:30 AM, 3:30 PM) + 36.25/145 MG (6:30 PM, 8:30 PM HS) 5 DF, DAILY
     Route: 048
     Dates: start: 201801, end: 2018
  5. AMANTADINE. [Concomitant]
     Active Substance: AMANTADINE HYDROCHLORIDE
     Dosage: 100 MG, THREE TIMES A DAY (4:30 AM, 9?9:30 AM, 3:30 PM)
     Route: 065
     Dates: start: 20180108
  6. MELATONIN [Concomitant]
     Active Substance: MELATONIN
     Indication: PRODUCT USED FOR UNKNOWN INDICATION
     Dosage: 15 MG, BEDTIME, AT 8:30 PM (HS)
     Route: 065
     Dates: start: 20180108
  7. CARBIDOPA?LEVODOPA ER [Suspect]
     Active Substance: CARBIDOPA\LEVODOPA
     Dosage: 25/100 MG 4:30 AM, 9?9:30 AM, 3:30 PM, 6:30 PM AND 2?3 AM AND 1.5 DF 7:30 AM AND 1:30 PM,8 DF, DAILY
     Route: 065
     Dates: start: 201801, end: 201801
  8. RYTARY [Suspect]
     Active Substance: CARBIDOPA\LEVODOPA
     Indication: PARKINSON^S DISEASE
     Dosage: 36.25/145 MG (4:30 AM, 9?9:30 AM, 3:30 PM) + 23.75/95 MG (6:30 PM, 8:30 PM HS) 5 DF, DAILY
     Route: 048
     Dates: start: 201801, end: 201801
  9. CLONAZEPAM. [Concomitant]
     Active Substance: CLONAZEPAM
     Indication: PRODUCT USED FOR UNKNOWN INDICATION
     Dosage: 0.5 MG, 2 AT 8:30 PM (HS)
     Route: 065
     Dates: start: 20180108
  10. CARBIDOPA?LEVODOPA ER [Suspect]
     Active Substance: CARBIDOPA\LEVODOPA
     Indication: PARKINSON^S DISEASE
     Dosage: 25/100 MG, UNK
     Route: 065
  11. RYTARY [Suspect]
     Active Substance: CARBIDOPA\LEVODOPA
     Dosage: 48.75/195 MG (4:30 AM AND 9?9:30 AM) + 36.25/145 MG [ 1:30 PM, 3:30 PM, 6:30 PM, 8:30 PM)6 DF, DAILY
     Route: 048
     Dates: start: 201803
  12. NEUPRO [Concomitant]
     Active Substance: ROTIGOTINE
     Indication: PRODUCT USED FOR UNKNOWN INDICATION
     Dosage: 6 MG, 1 (9?9:30 AM), CUT OFF ? THE PATCH AT BEDTIME AT 8:30 PM (HS)
     Route: 065
     Dates: start: 20180108
  13. AMLODIPINE [Concomitant]
     Active Substance: AMLODIPINE BESYLATE
     Indication: PRODUCT USED FOR UNKNOWN INDICATION
     Dosage: UNK
     Route: 065

REACTIONS (7)
  - Dizziness [Unknown]
  - Sleep disorder [Unknown]
  - Fatigue [Unknown]
  - Therapeutic response shortened [Recovered/Resolved]
  - Asthenia [Unknown]
  - Orthostatic hypotension [Unknown]
  - Dystonia [Unknown]
